FAERS Safety Report 18343335 (Version 1)
Quarter: 2020Q4

REPORT INFORMATION
  Report Type: Spontaneous
  Country: US (occurrence: US)
  Receive Date: 20201003
  Receipt Date: 20201003
  Transmission Date: 20210113
  Serious: No
  Sender: FDA-Public Use
  Company Number: None

PATIENT
  Sex: Female

DRUGS (1)
  1. LISINOPRIL (ROUND SMALL PINK TABLET) [Suspect]
     Active Substance: LISINOPRIL
     Indication: HYPERTENSION
     Dosage: ?          QUANTITY:1 TABLET(S);?
     Route: 048
     Dates: start: 20200913, end: 20201002

REACTIONS (4)
  - Headache [None]
  - Dizziness [None]
  - Blood pressure increased [None]
  - Suspected product quality issue [None]

NARRATIVE: CASE EVENT DATE: 20200913
